FAERS Safety Report 4756049-2 (Version None)
Quarter: 2005Q3

REPORT INFORMATION
  Report Type: 
  Country: None (occurrence: None)
  Receive Date: 20050826
  Receipt Date: 20041112
  Transmission Date: 20060218
  Serious: Yes (Hospitalization, Other)
  Sender: FDA-Public Use
  Company Number: USA-2004-0017717

PATIENT
  Age: 30 Year
  Sex: Male

DRUGS (3)
  1. OXYCONTIN [Suspect]
     Dosage: UNK MG, ORAL
     Route: 048
  2. OXYCODONE HYDRONCHLORIDE (SIMILAR TO NDA 20-553) (OXYCODONE HYDROCHLOR [Suspect]
     Dosage: UNK MG
  3. PERCOCET [Suspect]

REACTIONS (1)
  - POLYSUBSTANCE ABUSE [None]
